FAERS Safety Report 7887617 (Version 5)
Quarter: 2012Q4

REPORT INFORMATION
  Report Type: 
  Country: US (occurrence: US)
  Receive Date: 20110406
  Receipt Date: 20121214
  Transmission Date: 20130627
  Serious: Yes (Life-Threatening)
  Sender: FDA-Public Use
  Company Number: US-GENZYME-FABR-1001872

PATIENT

DRUGS (18)
  1. FABRAZYME [Suspect]
     Indication: FABRY^S DISEASE
     Dosage: 60 mg, UNK
     Route: 042
     Dates: start: 20110318
  2. FABRAZYME [Suspect]
     Dosage: UNK
     Route: 042
     Dates: start: 20110304
  3. FABRAZYME [Suspect]
     Dosage: UNK
     Dates: start: 20110201
  4. FABRAZYME [Suspect]
     Dosage: 70 mg, q2w
     Route: 042
     Dates: start: 2008
  5. LEXAPRO [Concomitant]
     Indication: PRODUCT USED FOR UNKNOWN INDICATION
  6. ASPIRIN [Concomitant]
     Indication: PRODUCT USED FOR UNKNOWN INDICATION
  7. COUMADIN [Concomitant]
     Indication: HEART VALVE REPLACEMENT
  8. PROGRAF [Concomitant]
     Indication: RENAL TRANSPLANT
  9. CELLCEPT [Concomitant]
     Indication: RENAL TRANSPLANT
  10. BYSTOLIC [Concomitant]
     Indication: PRODUCT USED FOR UNKNOWN INDICATION
  11. TUMS [Concomitant]
     Indication: PRODUCT USED FOR UNKNOWN INDICATION
  12. LORTAB [Concomitant]
     Indication: PRODUCT USED FOR UNKNOWN INDICATION
  13. BENADRYL [Concomitant]
     Indication: PREMEDICATION
     Dosage: 25 mg, UNK
     Route: 042
  14. ACETAMINOPHEN [Concomitant]
     Indication: PREMEDICATION
     Dosage: 1000 mg, UNK
  15. PREDNISONE [Concomitant]
     Indication: PREMEDICATION
     Dosage: 40 mg, UNK
     Route: 048
  16. PREDNISONE [Concomitant]
     Dosage: 20 mg, UNK
  17. FAMOTIDINE [Concomitant]
     Indication: PREMEDICATION
     Dosage: 20 mg, UNK
     Route: 042
  18. DIPHENHYDRAMINE [Concomitant]
     Indication: PREMEDICATION
     Route: 042

REACTIONS (7)
  - Anaphylactoid reaction [Recovered/Resolved]
  - Hypotension [Recovered/Resolved]
  - Pruritus [Recovered/Resolved]
  - Rash macular [Recovered/Resolved]
  - Nausea [Recovered/Resolved]
  - Vomiting [Recovered/Resolved]
  - Angioedema [Recovered/Resolved]
